FAERS Safety Report 16741928 (Version 1)
Quarter: 2019Q3

REPORT INFORMATION
  Report Type: Report from Study
  Country: US (occurrence: US)
  Receive Date: 20190826
  Receipt Date: 20190826
  Transmission Date: 20191005
  Serious: Yes (Hospitalization)
  Sender: FDA-Public Use
  Company Number: US-BAYER-2019-156417

PATIENT
  Age: 58 Year
  Sex: Female

DRUGS (1)
  1. ADEMPAS [Suspect]
     Active Substance: RIOCIGUAT
     Indication: PULMONARY ARTERIAL HYPERTENSION
     Dosage: 1 MG, TID
     Route: 048
     Dates: start: 20180403

REACTIONS (5)
  - Abdominal tenderness [None]
  - Malaise [None]
  - Flank pain [None]
  - Dyspnoea [Not Recovered/Not Resolved]
  - Oxygen saturation decreased [None]

NARRATIVE: CASE EVENT DATE: 201908
